FAERS Safety Report 9173581 (Version 1)
Quarter: 2013Q1

REPORT INFORMATION
  Report Type: Spontaneous
  Country: PT (occurrence: None)
  Receive Date: 20130204
  Receipt Date: 20130204
  Transmission Date: 20140127
  Serious: Yes (Life-Threatening)
  Sender: FDA-Public Use
  Company Number: GAM-014-13-PT

PATIENT
  Age: 79 Year
  Sex: Female

DRUGS (12)
  1. OCTAGAM [Suspect]
     Indication: GUILLAIN-BARRE SYNDROME
     Route: 042
     Dates: start: 20130115, end: 20130117
  2. PIPERACILLIN AND TAZOBACTAM [Concomitant]
  3. FUROSEMIDE [Concomitant]
  4. CAPTOPRIL [Concomitant]
  5. CARVEDILOL [Concomitant]
  6. GABAPENTIN [Concomitant]
  7. DIMETHICONE [Concomitant]
  8. AMIODARONE [Concomitant]
  9. PARACETAMOL [Concomitant]
  10. VERAPAMIL [Concomitant]
  11. ESOMEPRAZOLE [Concomitant]
  12. ENOXAPARIN [Concomitant]

REACTIONS (4)
  - Cardiogenic shock [None]
  - Pyrexia [None]
  - Anaphylactic reaction [None]
  - Multi-organ failure [None]
